FAERS Safety Report 8232838-7 (Version None)
Quarter: 2012Q1

REPORT INFORMATION
  Report Type: 
  Country: None (occurrence: None)
  Receive Date: 20120323
  Receipt Date: 20120315
  Transmission Date: 20120608
  Serious: Yes (Other)
  Sender: FDA-Public Use
  Company Number: BR-ASTRAZENECA-2012SE04603

PATIENT
  Age: 7 Year
  Sex: Female
  Weight: 42 kg

DRUGS (4)
  1. PRILOSEC [Suspect]
     Indication: GASTROOESOPHAGEAL REFLUX DISEASE
     Route: 048
     Dates: start: 20100101, end: 20110901
  2. NEXIUM [Suspect]
     Indication: GASTROOESOPHAGEAL REFLUX DISEASE
     Route: 048
     Dates: start: 20110901
  3. UNKNOWN [Concomitant]
     Indication: ASTHMA
  4. NEXIUM [Suspect]
     Route: 048

REACTIONS (2)
  - PNEUMONIA ASPIRATION [None]
  - OFF LABEL USE [None]
